FAERS Safety Report 5816990-6 (Version None)
Quarter: 2008Q3

REPORT INFORMATION
  Report Type: 
  Country: None (occurrence: None)
  Receive Date: 20080722
  Receipt Date: 20080713
  Transmission Date: 20090109
  Serious: Yes (Death)
  Sender: FDA-Public Use
  Company Number: US-WYE-H04985008

PATIENT
  Sex: Male

DRUGS (1)
  1. ZOSYN [Suspect]
     Indication: SKIN ULCER
     Route: 042
     Dates: start: 20080713, end: 20080713

REACTIONS (2)
  - CONVULSION [None]
  - RESPIRATORY FAILURE [None]
